FAERS Safety Report 7719722-X (Version None)
Quarter: 2011Q3

REPORT INFORMATION
  Report Type: 
  Country: None (occurrence: None)
  Receive Date: 20110830
  Receipt Date: 20110816
  Transmission Date: 20111222
  Serious: Yes (Disabling, Other)
  Sender: FDA-Public Use
  Company Number: US-BAYER-201041585NA

PATIENT
  Sex: Female
  Weight: 78.7 kg

DRUGS (26)
  1. GADOLINIUM IN UNSPECIFIED DRUG [Suspect]
     Dates: start: 20040716, end: 20040716
  2. OPTIMARK [Suspect]
     Indication: IMAGING PROCEDURE
  3. RENAGEL [Concomitant]
  4. COUMADIN [Concomitant]
  5. ENALAPRIL MALEATE [Concomitant]
  6. MULTIHANCE [Suspect]
  7. GADOLINIUM IN UNSPECIFIED DRUG [Suspect]
     Dates: start: 20050525, end: 20050525
  8. GADOLINIUM IN UNSPECIFIED DRUG [Suspect]
     Dates: start: 20080225, end: 20080225
  9. EPOGEN [Concomitant]
  10. GADOLINIUM IN UNSPECIFIED DRUG [Suspect]
     Dates: start: 20040517, end: 20040517
  11. GADOLINIUM IN UNSPECIFIED DRUG [Suspect]
     Dates: start: 20040604, end: 20040604
  12. GADOLINIUM IN UNSPECIFIED DRUG [Suspect]
     Indication: NUCLEAR MAGNETIC RESONANCE IMAGING
     Dates: start: 20020824, end: 20020824
  13. GADOLINIUM IN UNSPECIFIED DRUG [Suspect]
     Dates: start: 20080604, end: 20080604
  14. NORVASC [Concomitant]
  15. PROHANCE [Suspect]
  16. OMNISCAN [Suspect]
     Indication: IMAGING PROCEDURE
  17. PROHANCE [Suspect]
     Indication: IMAGING PROCEDURE
  18. MAGNEVIST [Suspect]
     Indication: IMAGING PROCEDURE
  19. TENORMIN [Concomitant]
  20. RENVELA [Concomitant]
  21. MULTIHANCE [Suspect]
     Indication: IMAGING PROCEDURE
  22. CLONIDINE [Concomitant]
  23. METOPROLOL TARTRATE [Concomitant]
  24. VENOFER [Concomitant]
  25. ALTACE [Concomitant]
  26. ARANESP [Concomitant]

REACTIONS (12)
  - EMOTIONAL DISTRESS [None]
  - FIBROSIS [None]
  - COORDINATION ABNORMAL [None]
  - SKIN TIGHTNESS [None]
  - SKIN INDURATION [None]
  - ABASIA [None]
  - NEPHROGENIC SYSTEMIC FIBROSIS [None]
  - PAIN [None]
  - DEFORMITY [None]
  - ANXIETY [None]
  - MOBILITY DECREASED [None]
  - SKIN DISCOLOURATION [None]
